FAERS Safety Report 6519868-8 (Version None)
Quarter: 2009Q4

REPORT INFORMATION
  Report Type: 
  Country: None (occurrence: None)
  Receive Date: 20091228
  Receipt Date: 20091221
  Transmission Date: 20100525
  Serious: Yes (Hospitalization)
  Sender: FDA-Public Use
  Company Number: US-ELI_LILLY_AND_COMPANY-US200912004989

PATIENT
  Sex: Female
  Weight: 53.52 kg

DRUGS (3)
  1. GEMCITABINE HCL [Suspect]
     Indication: NON-SMALL CELL LUNG CANCER
     Dosage: 1510 MG, OTHER
     Route: 042
     Dates: start: 20091209
  2. CETUXIMAB [Suspect]
     Indication: NON-SMALL CELL LUNG CANCER
     Dosage: 378 MG, OTHER
     Route: 042
     Dates: start: 20091209
  3. CARBOPLATIN [Suspect]
     Indication: NON-SMALL CELL LUNG CANCER
     Dosage: 446 MG, OTHER
     Route: 042
     Dates: start: 20091209

REACTIONS (2)
  - CONFUSIONAL STATE [None]
  - NEUTROPENIA [None]
